FAERS Safety Report 10547424 (Version 3)
Quarter: 2014Q4

REPORT INFORMATION
  Report Type: Report from Study
  Country: US (occurrence: US)
  Receive Date: 20141028
  Receipt Date: 20141222
  Transmission Date: 20150529
  Serious: Yes (Death)
  Sender: FDA-Public Use
  Company Number: US-BIOGENIDEC-2014BI111254

PATIENT
  Age: 76 Year
  Sex: Female

DRUGS (11)
  1. ARIMIDEX [Concomitant]
     Active Substance: ANASTROZOLE
  2. SANCTURA XR [Concomitant]
     Active Substance: TROSPIUM CHLORIDE
  3. MYRBETRIQ [Concomitant]
     Active Substance: MIRABEGRON
  4. AVONEX [Suspect]
     Active Substance: INTERFERON BETA-1A
     Indication: MULTIPLE SCLEROSIS
     Route: 030
     Dates: start: 20001213
  5. FOSAMAX [Concomitant]
     Active Substance: ALENDRONATE SODIUM
  6. LYRICA [Concomitant]
     Active Substance: PREGABALIN
  7. CALCIUM [Concomitant]
     Active Substance: CALCIUM
     Indication: ANTACID THERAPY
  8. CITALOPRAM [Concomitant]
     Active Substance: CITALOPRAM HYDROBROMIDE
     Indication: SLEEP DISORDER
  9. PROVIGIL [Concomitant]
     Active Substance: MODAFINIL
  10. LEVOTHYROXINE [Concomitant]
     Active Substance: LEVOTHYROXINE
  11. AVONEX [Suspect]
     Active Substance: INTERFERON BETA-1A
     Indication: MULTIPLE SCLEROSIS
     Route: 030
     Dates: start: 20020119, end: 20140220

REACTIONS (4)
  - Respiratory arrest [Fatal]
  - Death [Fatal]
  - Choking [Fatal]
  - Cardiac arrest [Fatal]

NARRATIVE: CASE EVENT DATE: 20140220
